FAERS Safety Report 13998707 (Version 1)
Quarter: 2017Q3

REPORT INFORMATION
  Report Type: Spontaneous
  Country: US (occurrence: None)
  Receive Date: 20170922
  Receipt Date: 20170922
  Transmission Date: 20171128
  Serious: Yes (Hospitalization)
  Sender: FDA-Public Use
  Company Number: None

PATIENT
  Age: 14 Year
  Sex: Male
  Weight: 69.4 kg

DRUGS (7)
  1. CYCLOPHOSPHAMIDE. [Suspect]
     Active Substance: CYCLOPHOSPHAMIDE
     Dates: end: 20140215
  2. MERCAPTOPURINE. [Suspect]
     Active Substance: MERCAPTOPURINE
     Dates: end: 20140126
  3. VINCRISTINE SULFATE. [Suspect]
     Active Substance: VINCRISTINE SULFATE
     Dates: end: 20140225
  4. ONCASPAR [Suspect]
     Active Substance: PEGASPARGASE
     Dates: end: 20140225
  5. CLOLAR [Suspect]
     Active Substance: CLOFARABINE
     Dates: end: 20140215
  6. CYTARABINE. [Suspect]
     Active Substance: CYTARABINE
     Dates: end: 20140123
  7. METHOTREXATE. [Suspect]
     Active Substance: METHOTREXATE
     Dates: end: 20140203

REACTIONS (9)
  - Diarrhoea [None]
  - Blood culture positive [None]
  - Decreased appetite [None]
  - Stomatococcal infection [None]
  - Nausea [None]
  - Pain in jaw [None]
  - Clostridium test positive [None]
  - Vomiting [None]
  - Pyrexia [None]

NARRATIVE: CASE EVENT DATE: 20140222
